FAERS Safety Report 22021911 (Version 2)
Quarter: 2023Q1

REPORT INFORMATION
  Report Type: Spontaneous
  Country: JP (occurrence: JP)
  Receive Date: 20230222
  Receipt Date: 20230327
  Transmission Date: 20230418
  Serious: Yes (Other)
  Sender: FDA-Public Use
  Company Number: JP-MYOVANT SCIENCES GMBH-2023MYSCI0200424

PATIENT
  Age: 55 Year
  Sex: Female

DRUGS (6)
  1. RELUGOLIX [Suspect]
     Active Substance: RELUGOLIX
     Indication: Endometriosis
     Dosage: 40 MILLIGRAM, QD
     Route: 048
     Dates: start: 20230206, end: 20230209
  2. RELUGOLIX [Suspect]
     Active Substance: RELUGOLIX
     Indication: Uterine leiomyoma
  3. DIENOGEST [Concomitant]
     Active Substance: DIENOGEST
     Indication: Adenomyosis
     Dosage: 2 MILLIGRAM, QD
     Route: 048
     Dates: start: 20170329, end: 20170705
  4. DIENOGEST [Concomitant]
     Active Substance: DIENOGEST
     Dosage: 2 MILLIGRAM, QD
     Route: 048
     Dates: start: 20171226, end: 20220809
  5. ZOLADEX                            /00732101/ [Concomitant]
     Indication: Uterine leiomyoma
     Dosage: UNK
     Route: 058
     Dates: start: 20161011, end: 20170301
  6. ZOLADEX                            /00732101/ [Concomitant]
     Dosage: UNK
     Route: 058
     Dates: start: 20170711, end: 20171128

REACTIONS (1)
  - Uterine haemorrhage [Recovering/Resolving]

NARRATIVE: CASE EVENT DATE: 20230207
